FAERS Safety Report 7353216-9 (Version None)
Quarter: 2011Q1

REPORT INFORMATION
  Report Type: 
  Country: None (occurrence: None)
  Receive Date: 20110315
  Receipt Date: 20110308
  Transmission Date: 20110831
  Serious: Yes (Hospitalization)
  Sender: FDA-Public Use
  Company Number: US-PFIZER INC-2011051467

PATIENT
  Sex: Male
  Weight: 100.2 kg

DRUGS (9)
  1. SENNA ALEXANDRINA [Concomitant]
  2. DOXORUBICIN HCL [Suspect]
     Indication: SARCOMA
     Dosage: 75 MG/M2, UNK
     Route: 042
     Dates: start: 20101116
  3. DEXRAZOXANE [Suspect]
     Indication: SARCOMA
     Dosage: UNK
     Route: 042
     Dates: start: 20110208
  4. PDGFRA [Suspect]
     Indication: SARCOMA
     Dosage: 15 MG/KG, UNK
     Route: 042
     Dates: start: 20101116
  5. DEXAMETHASONE SODIUM PHOSPHATE [Concomitant]
  6. OMEPRAZOLE [Concomitant]
  7. ZOFRAN [Concomitant]
  8. EMEND [Concomitant]
  9. ENOXAPARIN SODIUM [Concomitant]

REACTIONS (1)
  - FEBRILE NEUTROPENIA [None]
